FAERS Safety Report 23821675 (Version 1)
Quarter: 2024Q2

REPORT INFORMATION
  Report Type: Spontaneous
  Country: US (occurrence: None)
  Receive Date: 20240505
  Receipt Date: 20240505
  Transmission Date: 20240715
  Serious: Yes (Life-Threatening)
  Sender: FDA-Public Use
  Company Number: None

PATIENT
  Age: 46 Year
  Sex: Female
  Weight: 54.43 kg

DRUGS (1)
  1. DICLOFENAC [Suspect]
     Active Substance: DICLOFENAC
     Indication: Pain
     Dosage: 75 MG DAILY
     Dates: start: 20240430

REACTIONS (1)
  - Expired product administered [None]

NARRATIVE: CASE EVENT DATE: 20240503
